FAERS Safety Report 9726463 (Version 1)
Quarter: 2013Q4

REPORT INFORMATION
  Report Type: Spontaneous
  Country: CH (occurrence: CH)
  Receive Date: 20131203
  Receipt Date: 20131203
  Transmission Date: 20140711
  Serious: Yes (Hospitalization)
  Sender: FDA-Public Use
  Company Number: CH-PFIZER INC-2013341800

PATIENT
  Age: 59 Year
  Sex: Male

DRUGS (6)
  1. DILZEM RETARD [Suspect]
     Indication: ESSENTIAL HYPERTENSION
     Dosage: 90 MG, 2X/DAY
     Route: 048
     Dates: start: 20131002
  2. CARDURA [Suspect]
     Indication: ESSENTIAL HYPERTENSION
     Dosage: 8 MG, 1X/DAY
     Route: 048
     Dates: start: 20131002
  3. HYGROTON [Suspect]
     Indication: ESSENTIAL HYPERTENSION
     Dosage: 25 MG, 1X/DAY
     Route: 048
     Dates: start: 20131014, end: 20131021
  4. TORASEMIDE [Suspect]
     Indication: ESSENTIAL HYPERTENSION
     Dosage: 5 MG, 1X/DAY
     Route: 048
     Dates: start: 20131021, end: 20131102
  5. COSAAR PLUS FORTE [Suspect]
     Indication: ESSENTIAL HYPERTENSION
     Dosage: UNK
     Route: 048
  6. APROVEL [Concomitant]
     Indication: ESSENTIAL HYPERTENSION
     Route: 048

REACTIONS (1)
  - Drug eruption [Recovering/Resolving]
